FAERS Safety Report 5046906-4 (Version None)
Quarter: 2006Q3

REPORT INFORMATION
  Report Type: 
  Country: None (occurrence: None)
  Receive Date: 20060710
  Receipt Date: 20060314
  Transmission Date: 20061208
  Serious: Yes (Hospitalization)
  Sender: FDA-Public Use
  Company Number: FR-MERCK-0603FRA00047

PATIENT
  Age: 37 Year
  Sex: Male

DRUGS (11)
  1. CRIXIVAN [Suspect]
     Indication: HIV INFECTION
     Route: 048
     Dates: start: 20050101, end: 20060214
  2. CRIXIVAN [Suspect]
     Route: 048
     Dates: start: 20060221
  3. RITONAVIR [Suspect]
     Indication: HIV INFECTION
     Route: 048
     Dates: start: 20050101, end: 20060214
  4. RITONAVIR [Suspect]
     Route: 048
     Dates: start: 20060221
  5. LAMIVUDINE [Suspect]
     Indication: HIV INFECTION
     Route: 048
     Dates: start: 20050101, end: 20060214
  6. TENOFOVIR DISOPROXIL FUMARATE [Suspect]
     Indication: HIV INFECTION
     Route: 048
     Dates: start: 20060131, end: 20060214
  7. INSULIN ASPART, BIPHASIC ISOPHANE [INJECTION] [Concomitant]
     Indication: DIABETES MELLITUS INSULIN-DEPENDENT
     Route: 058
  8. PROPRANOLOL HYDROCHLORIDE [Concomitant]
     Route: 048
  9. DESLORATADINE [Concomitant]
     Route: 048
  10. MIANSERIN HYDROCHLORIDE [Concomitant]
     Indication: DEPRESSION
     Route: 048
  11. NUTRITIONAL SUPPLEMENTS [Concomitant]
     Route: 048

REACTIONS (3)
  - BACTERIAL SEPSIS [None]
  - METABOLIC ACIDOSIS [None]
  - RENAL TUBULAR DISORDER [None]
